FAERS Safety Report 5082746-8 (Version None)
Quarter: 2006Q3

REPORT INFORMATION
  Report Type: 
  Country: None (occurrence: None)
  Receive Date: 20060816
  Receipt Date: 20060816
  Transmission Date: 20061208
  Serious: No
  Sender: FDA-Public Use
  Company Number: None

PATIENT
  Sex: Male
  Weight: 100.2449 kg

DRUGS (1)
  1. ZETIA [Suspect]
     Indication: HYPERCHOLESTEROLAEMIA
     Dosage: 10MG  1 DAILY  PO
     Route: 048
     Dates: start: 20060522, end: 20060725

REACTIONS (1)
  - BLOOD CREATINE PHOSPHOKINASE INCREASED [None]
